FAERS Safety Report 7898115-9 (Version None)
Quarter: 2011Q4

REPORT INFORMATION
  Report Type: 
  Country: None (occurrence: None)
  Receive Date: 20111107
  Receipt Date: 20111101
  Transmission Date: 20120403
  Serious: Yes (Other)
  Sender: FDA-Public Use
  Company Number: US-PFIZER INC-2011268079

PATIENT
  Sex: Female
  Weight: 58.957 kg

DRUGS (2)
  1. ZYVOX [Suspect]
     Indication: URINARY TRACT INFECTION STAPHYLOCOCCAL
     Dosage: 600 MG, 2X/DAY
     Dates: start: 20110930, end: 20111027
  2. VANCOMYCIN [Concomitant]
     Indication: URINARY TRACT INFECTION STAPHYLOCOCCAL
     Dosage: UNK
     Dates: start: 20110927, end: 20110930

REACTIONS (4)
  - URINARY TRACT INFECTION STAPHYLOCOCCAL [None]
  - DEPRESSION [None]
  - CRYING [None]
  - EMOTIONAL DISORDER [None]
